FAERS Safety Report 7084497-7 (Version None)
Quarter: 2010Q4

REPORT INFORMATION
  Report Type: 
  Country: None (occurrence: None)
  Receive Date: 20101104
  Receipt Date: 20101102
  Transmission Date: 20110411
  Serious: No
  Sender: FDA-Public Use
  Company Number: US-PFIZER INC-2010139333

PATIENT
  Sex: Male

DRUGS (2)
  1. ALDACTONE [Suspect]
     Dosage: UNK
     Route: 048
  2. LASIX [Suspect]
     Dosage: UNK
     Route: 048

REACTIONS (1)
  - BREAST PAIN [None]
